FAERS Safety Report 9167878 (Version 1)
Quarter: 2013Q1

REPORT INFORMATION
  Report Type: Spontaneous
  Country: US (occurrence: None)
  Receive Date: 20130228
  Receipt Date: 20130228
  Transmission Date: 20140127
  Serious: Yes (Other)
  Sender: FDA-Public Use
  Company Number: 2013034838

PATIENT
  Age: 5 Year
  Sex: Female

DRUGS (5)
  1. IVIG (IMMUNE GLOBULIN INTRAVENOUS (HUMAN) 10% LIQUID) [Suspect]
     Indication: KAWASAKI^S DISEASE
  2. AMOXICILLIN (AMOXICILLIN) [Suspect]
  3. CEFDINIR (CEFDINIR) [Suspect]
  4. CEFTRIAXONE (CEFTRIAXONE) [Suspect]
  5. PHENOBARBITAL (PHENOBARBITAL) [Suspect]

REACTIONS (7)
  - Drug reaction with eosinophilia and systemic symptoms [None]
  - Hypotension [None]
  - Tachycardia [None]
  - Convulsion [None]
  - Drug ineffective for unapproved indication [None]
  - Convulsion [None]
  - Staphylococcal sepsis [None]
